FAERS Safety Report 10040894 (Version 1)
Quarter: 2014Q1

REPORT INFORMATION
  Report Type: Spontaneous
  Country: US (occurrence: US)
  Receive Date: 20140327
  Receipt Date: 20140327
  Transmission Date: 20141002
  Serious: Yes (Other)
  Sender: FDA-Public Use
  Company Number: US-PFIZER INC-2014085285

PATIENT
  Age: 79 Year
  Sex: Male

DRUGS (8)
  1. ERYTHROMYCIN [Suspect]
     Dosage: UNK
  2. TRIMETHOPRIM [Suspect]
     Dosage: UNK
  3. PHENOBARBITAL [Suspect]
     Dosage: UNK
  4. ACTH [Suspect]
     Dosage: UNK
  5. DRIXORAL [Suspect]
     Dosage: UNK
  6. FLURAZEPAM HYDROCHLORIDE [Suspect]
  7. DICYCLOVERINE HYDROCHLORIDE [Suspect]
  8. CHLORPHENAMINE W/PHENYLPROPANOLAMINE [Suspect]

REACTIONS (1)
  - Drug hypersensitivity [Unknown]
